FAERS Safety Report 6642374-7 (Version None)
Quarter: 2010Q1

REPORT INFORMATION
  Report Type: 
  Country: None (occurrence: None)
  Receive Date: 20100319
  Receipt Date: 20100310
  Transmission Date: 20100710
  Serious: Yes (Hospitalization)
  Sender: FDA-Public Use
  Company Number: LB-ROCHE-690530

PATIENT
  Age: 50 Year
  Sex: Female

DRUGS (1)
  1. XELODA [Suspect]
     Indication: RECTAL CANCER
     Dosage: FREQUENCY: 6 TABLETS DAILY
     Route: 048

REACTIONS (1)
  - RENAL FAILURE [None]
